FAERS Safety Report 10245597 (Version 2)
Quarter: 2014Q3

REPORT INFORMATION
  Report Type: Spontaneous
  Country: AU (occurrence: AU)
  Receive Date: 20140619
  Receipt Date: 20140730
  Transmission Date: 20150326
  Serious: Yes (Hospitalization, Other)
  Sender: FDA-Public Use
  Company Number: AU-UCBSA-2014001032

PATIENT
  Sex: Female

DRUGS (2)
  1. KEPPRA [Suspect]
     Active Substance: LEVETIRACETAM
     Dosage: 1500 MG
     Route: 048
     Dates: start: 20140604
  2. KEPPRA [Suspect]
     Active Substance: LEVETIRACETAM
     Dosage: 250MG MORNING; 500MG EVENING  (2X/DAY (BID))
     Route: 048

REACTIONS (3)
  - Overdose [Unknown]
  - Convulsion [Unknown]
  - Mental disorder [Unknown]

NARRATIVE: CASE EVENT DATE: 20140604
